FAERS Safety Report 13062007 (Version 1)
Quarter: 2016Q4

REPORT INFORMATION
  Report Type: Spontaneous
  Country: US (occurrence: US)
  Receive Date: 20161226
  Receipt Date: 20161226
  Transmission Date: 20170207
  Serious: Yes (Other)
  Sender: FDA-Public Use
  Company Number: US-TEVA-723158ACC

PATIENT
  Sex: Female
  Weight: 58.11 kg

DRUGS (1)
  1. PARAGARD T 380A [Suspect]
     Active Substance: COPPER
     Indication: CONTRACEPTION
     Dates: start: 20160504, end: 20160516

REACTIONS (3)
  - Device dislocation [Recovered/Resolved]
  - Discomfort [Recovered/Resolved]
  - Pelvic pain [Recovered/Resolved]
